FAERS Safety Report 16972200 (Version 2)
Quarter: 2019Q4

REPORT INFORMATION
  Report Type: Spontaneous
  Country: RU (occurrence: RU)
  Receive Date: 20191029
  Receipt Date: 20191108
  Transmission Date: 20200122
  Serious: Yes (Other)
  Sender: FDA-Public Use
  Company Number: RU-GILEAD-2019-0435156

PATIENT
  Age: 55 Year
  Sex: Male

DRUGS (5)
  1. DACLATASVIR. [Suspect]
     Active Substance: DACLATASVIR
     Indication: CHRONIC HEPATITIS C
     Dosage: UNK
     Route: 065
  2. RIBAVIRIN. [Concomitant]
     Active Substance: RIBAVIRIN
     Dosage: UNK
  3. ASUNAPREVIR [Concomitant]
     Active Substance: ASUNAPREVIR
     Dosage: UNK
  4. SOFOSBUVIR [Suspect]
     Active Substance: SOFOSBUVIR
     Indication: CHRONIC HEPATITIS C
     Dosage: UNK
     Route: 065
  5. SOFOSBUVIR W/VELPATASVIR [Concomitant]
     Active Substance: SOFOSBUVIR\VELPATASVIR
     Dosage: UNK

REACTIONS (5)
  - Hepatitis C [Unknown]
  - Off label use [Recovered/Resolved]
  - Genotype drug resistance test positive [Unknown]
  - Liver transplant [Unknown]
  - Drug ineffective [Unknown]

NARRATIVE: CASE EVENT DATE: 20190419
